FAERS Safety Report 15203884 (Version 1)
Quarter: 2018Q3

REPORT INFORMATION
  Report Type: Spontaneous
  Country: US (occurrence: US)
  Receive Date: 20180628
  Receipt Date: 20180628
  Transmission Date: 20181010
  Serious: Yes (Other)
  Sender: FDA-Public Use
  Company Number: None

PATIENT
  Age: 68 Year
  Sex: Female
  Weight: 58.91 kg

DRUGS (7)
  1. IBRANCE [Suspect]
     Active Substance: PALBOCICLIB
     Indication: BREAST CANCER
     Route: 048
     Dates: start: 20170810, end: 20180627
  2. DOCUSATE [Concomitant]
     Active Substance: DOCUSATE
  3. DRONABINOL. [Concomitant]
     Active Substance: DRONABINOL
  4. FLUTICASONE. [Concomitant]
     Active Substance: FLUTICASONE
  5. KEPPRA [Concomitant]
     Active Substance: LEVETIRACETAM
  6. PERCOCET [Concomitant]
     Active Substance: ACETAMINOPHEN\OXYCODONE HYDROCHLORIDE
  7. ALPRAZOLAM. [Concomitant]
     Active Substance: ALPRAZOLAM

REACTIONS (1)
  - Disease progression [None]
